FAERS Safety Report 10207078 (Version 1)
Quarter: 2014Q2

REPORT INFORMATION
  Report Type: Spontaneous
  Country: US (occurrence: None)
  Receive Date: 20140527
  Receipt Date: 20140527
  Transmission Date: 20141212
  Serious: Yes (Hospitalization)
  Sender: FDA-Public Use
  Company Number: None

PATIENT
  Age: 45 Year
  Sex: Male

DRUGS (7)
  1. PIPERACILLIN/TAZOBACTAM [Suspect]
     Indication: WOUND INFECTION
     Route: 042
     Dates: start: 20120420, end: 20120501
  2. METFORMIN [Concomitant]
  3. ATROVASTATIN [Concomitant]
  4. CITALOPRAM [Concomitant]
  5. LOSARTAN [Suspect]
  6. GLIPIZIDE [Suspect]
  7. OXYCODONE [Concomitant]

REACTIONS (1)
  - Renal failure acute [None]
